FAERS Safety Report 19435925 (Version 1)
Quarter: 2021Q2

REPORT INFORMATION
  Report Type: Report from Study
  Country: US (occurrence: US)
  Receive Date: 20210618
  Receipt Date: 20210618
  Transmission Date: 20210717
  Serious: Yes (Other)
  Sender: FDA-Public Use
  Company Number: US-ASTRAZENECA-2021A525505

PATIENT
  Sex: Female

DRUGS (1)
  1. CALQUENCE [Suspect]
     Active Substance: ACALABRUTINIB
     Indication: CHRONIC LYMPHOCYTIC LEUKAEMIA
     Route: 048

REACTIONS (6)
  - White blood cell count abnormal [Unknown]
  - Blood pressure decreased [Unknown]
  - Tumour lysis syndrome [Unknown]
  - Blood potassium increased [Unknown]
  - Appetite disorder [Unknown]
  - Tremor [Unknown]
